FAERS Safety Report 6724804-5 (Version None)
Quarter: 2010Q2

REPORT INFORMATION
  Report Type: 
  Country: None (occurrence: None)
  Receive Date: 20100513
  Receipt Date: 20100503
  Transmission Date: 20101027
  Serious: Yes (Hospitalization)
  Sender: FDA-Public Use
  Company Number: US-JNJFOC-20100401745

PATIENT
  Sex: Female

DRUGS (5)
  1. REMICADE [Suspect]
     Indication: SARCOIDOSIS
     Route: 042
  2. REMICADE [Suspect]
     Route: 042
  3. LORAZEPAM [Concomitant]
  4. PREDNISONE [Concomitant]
  5. MYCOPHENOLATE MOFETIL [Concomitant]

REACTIONS (1)
  - SEPSIS [None]
